FAERS Safety Report 6388265-0 (Version None)
Quarter: 2009Q4

REPORT INFORMATION
  Report Type: 
  Country: None (occurrence: None)
  Receive Date: 20091001
  Receipt Date: 20091001
  Transmission Date: 20100525
  Serious: Yes (Death)
  Sender: FDA-Public Use
  Company Number: None

PATIENT
  Sex: Male

DRUGS (11)
  1. REVLIMID [Suspect]
     Indication: MULTIPLE MYELOMA
     Dosage: 25MG DAILY ORALLY
     Route: 048
     Dates: start: 20070922, end: 20071127
  2. INSULIN [Concomitant]
  3. ALLOPURINOL [Concomitant]
  4. METFORMIN HCL [Concomitant]
  5. ACTOS [Concomitant]
  6. LISINOPRIL [Concomitant]
  7. NEUPOGEN [Concomitant]
  8. QVAR 40 [Concomitant]
  9. MDI [Concomitant]
  10. CYANOCOBALAMIN [Concomitant]
  11. EPOETIN [Concomitant]

REACTIONS (1)
  - DEATH [None]
